FAERS Safety Report 6806449-1 (Version None)
Quarter: 2010Q2

REPORT INFORMATION
  Report Type: 
  Country: None (occurrence: None)
  Receive Date: 20100629
  Receipt Date: 20080321
  Transmission Date: 20101027
  Serious: No
  Sender: FDA-Public Use
  Company Number: US-PFIZER INC-2008012282

PATIENT
  Sex: Male
  Weight: 68.181 kg

DRUGS (1)
  1. VIAGRA [Suspect]
     Indication: PROSTATE CANCER
     Dates: start: 20010101

REACTIONS (4)
  - ABNORMAL SENSATION IN EYE [None]
  - CYANOPSIA [None]
  - NASAL CONGESTION [None]
  - SINUS CONGESTION [None]
